FAERS Safety Report 4769094-8 (Version None)
Quarter: 2005Q3

REPORT INFORMATION
  Report Type: 
  Country: None (occurrence: None)
  Receive Date: 20050912
  Receipt Date: 20050516
  Transmission Date: 20060218
  Serious: Yes (Other)
  Sender: FDA-Public Use
  Company Number: 2000-BP-01793

PATIENT
  Age: 47 Year
  Sex: Female

DRUGS (2)
  1. VIRAMUNE [Suspect]
     Indication: PROPHYLAXIS
     Dosage: 400 MG (200 MG, 1 TABLET BID), PO
     Route: 048
     Dates: start: 20000821, end: 20000912
  2. COMBIVIR [Concomitant]

REACTIONS (3)
  - HEPATOTOXICITY [None]
  - PYREXIA [None]
  - RASH [None]
